FAERS Safety Report 5530202-2 (Version None)
Quarter: 2007Q4

REPORT INFORMATION
  Report Type: 
  Country: None (occurrence: None)
  Receive Date: 20071130
  Receipt Date: 20071120
  Transmission Date: 20080405
  Serious: Yes (Hospitalization, Other)
  Sender: FDA-Public Use
  Company Number: CA-ABBOTT-07P-028-0365524-02

PATIENT
  Sex: Male

DRUGS (6)
  1. HUMIRA [Suspect]
     Indication: RHEUMATOID ARTHRITIS
     Route: 058
     Dates: start: 20070201
  2. DIGOXIN [Concomitant]
     Indication: MYOCARDIAL ISCHAEMIA
  3. ATENOLOL [Concomitant]
     Indication: MYOCARDIAL ISCHAEMIA
  4. CRESTOR [Concomitant]
     Indication: HYPERLIPIDAEMIA
  5. PARACETAMOL [Concomitant]
     Indication: ARTHRALGIA
  6. CYANOCOBALAMIN [Concomitant]
     Indication: VITAMIN B12 DEFICIENCY
     Dosage: 1000 MCG/ML

REACTIONS (2)
  - CHEST PAIN [None]
  - HEPATITIS [None]
